FAERS Safety Report 5819981-4 (Version None)
Quarter: 2008Q3

REPORT INFORMATION
  Report Type: 
  Country: None (occurrence: None)
  Receive Date: 20080721
  Receipt Date: 20080708
  Transmission Date: 20090109
  Serious: Yes (Hospitalization, Other)
  Sender: FDA-Public Use
  Company Number: 235971K07USA

PATIENT
  Age: 67 Year
  Sex: Female

DRUGS (2)
  1. REBIF [Suspect]
     Indication: MULTIPLE SCLEROSIS
     Dosage: 44 MCG, 3 IN 1 WEEKS, SUBCUTANEOUS
     Route: 058
     Dates: start: 20030604, end: 20070101
  2. REBIF [Suspect]
     Indication: MULTIPLE SCLEROSIS
     Dosage: 44 MCG, 3 IN 1 WEEKS, SUBCUTANEOUS
     Route: 058
     Dates: start: 20070927

REACTIONS (9)
  - ABASIA [None]
  - BONE GRAFT [None]
  - CRUSH INJURY [None]
  - FALL [None]
  - IMPAIRED HEALING [None]
  - LUNG NEOPLASM MALIGNANT [None]
  - PROCEDURAL COMPLICATION [None]
  - UPPER LIMB FRACTURE [None]
  - VERTEBRAL INJURY [None]
